FAERS Safety Report 15523697 (Version 2)
Quarter: 2018Q4

REPORT INFORMATION
  Report Type: Report from Study
  Country: US (occurrence: US)
  Receive Date: 20181018
  Receipt Date: 20181022
  Transmission Date: 20190205
  Serious: Yes (Death)
  Sender: FDA-Public Use
  Company Number: US-ROCHE-2193684

PATIENT
  Age: 62 Year
  Sex: Female
  Weight: 104.3 kg

DRUGS (11)
  1. PEGYLATED LIPOSOMAL DOXORUBICIN [Suspect]
     Active Substance: DOXORUBICIN
     Indication: OVARIAN CANCER STAGE III
     Route: 042
     Dates: start: 20180914
  2. METOCLOPRAMIDE. [Concomitant]
     Active Substance: METOCLOPRAMIDE
  3. ATENOLOL. [Concomitant]
     Active Substance: ATENOLOL
  4. ONDANSETRON [Concomitant]
     Active Substance: ONDANSETRON
  5. ASPIRIN. [Concomitant]
     Active Substance: ASPIRIN
  6. NORCO [Concomitant]
     Active Substance: ACETAMINOPHEN\HYDROCODONE BITARTRATE
  7. IBUPROFEN. [Concomitant]
     Active Substance: IBUPROFEN
  8. ATIVAN [Concomitant]
     Active Substance: LORAZEPAM
  9. LEVOTHYROXINE. [Concomitant]
     Active Substance: LEVOTHYROXINE
  10. PENICILLIN V [Concomitant]
     Active Substance: PENICILLIN V
  11. ATEZOLIZUMAB. [Suspect]
     Active Substance: ATEZOLIZUMAB
     Indication: OVARIAN CANCER STAGE III
     Dosage: CYCLE: 28 DAYS
     Route: 042
     Dates: start: 20180914, end: 20180914

REACTIONS (1)
  - Death [Fatal]

NARRATIVE: CASE EVENT DATE: 20180918
